FAERS Safety Report 10589247 (Version 2)
Quarter: 2015Q1

REPORT INFORMATION
  Report Type: Report from Study
  Country: JP (occurrence: JP)
  Receive Date: 20141118
  Receipt Date: 20150327
  Transmission Date: 20150720
  Serious: Yes (Other)
  Sender: FDA-Public Use
  Company Number: JP-009507513-1411JPN007764

PATIENT
  Age: 63 Year
  Sex: Female
  Weight: 58 kg

DRUGS (7)
  1. SIMEPREVIR [Suspect]
     Active Substance: SIMEPREVIR
     Indication: CHRONIC HEPATITIS C
     Dosage: 100 MG, Q IN 1 DAY
     Route: 048
     Dates: start: 20140611, end: 20140903
  2. PEGINTRON [Suspect]
     Active Substance: PEGINTERFERON ALFA-2B
     Indication: CHRONIC HEPATITIS C
     Dosage: 1.4 MICROGRAM PER KILOGRAM, QW
     Route: 058
     Dates: start: 20140611, end: 20141112
  3. RIBAVIRIN. [Suspect]
     Active Substance: RIBAVIRIN
     Indication: CHRONIC HEPATITIS C
     Dosage: 600 MG, 1 IN 1 DAY
     Route: 048
     Dates: start: 20140611, end: 20141118
  4. LOXOPROFEN [Concomitant]
     Active Substance: LOXOPROFEN
     Indication: PROPHYLAXIS
     Dosage: 60 MG, IN 1 AS NECESSARY, PRN
     Route: 048
     Dates: start: 20140611
  5. BROTIZOLAM [Concomitant]
     Active Substance: BROTIZOLAM
     Indication: PROPHYLAXIS
     Dosage: 0.25MG IN 1 AS NECESSARY, PRN
     Route: 048
     Dates: start: 20140616
  6. LOCOID [Concomitant]
     Active Substance: HYDROCORTISONE BUTYRATE
     Dosage: IN 1 AS NECESSARY, PRN
     Route: 061
     Dates: start: 20140611
  7. REBAMIPIDE [Concomitant]
     Active Substance: REBAMIPIDE
     Dosage: 100 MG, IN 1 AS NECESSARY, PRN
     Route: 048
     Dates: start: 20140611

REACTIONS (6)
  - Blood bilirubin increased [Recovering/Resolving]
  - Alanine aminotransferase increased [Recovering/Resolving]
  - Malaise [Recovering/Resolving]
  - Aspartate aminotransferase increased [Recovering/Resolving]
  - Eczema [Recovering/Resolving]
  - Erythema [Recovering/Resolving]

NARRATIVE: CASE EVENT DATE: 20140617
